FAERS Safety Report 8270955-6 (Version None)
Quarter: 2012Q2

REPORT INFORMATION
  Report Type: 
  Country: None (occurrence: None)
  Receive Date: 20120410
  Receipt Date: 20120328
  Transmission Date: 20120825
  Serious: Yes (Other)
  Sender: FDA-Public Use
  Company Number: JP-PFIZER INC-2012086237

PATIENT
  Age: 80 Year
  Sex: Female

DRUGS (3)
  1. DOXAZOSIN MESYLATE [Concomitant]
     Dosage: UNK
  2. ZONISAMIDE [Concomitant]
     Dosage: UNK
  3. LIPITOR [Suspect]
     Dosage: UNK
     Route: 048
     Dates: start: 20120301, end: 20120328

REACTIONS (4)
  - RHABDOMYOLYSIS [None]
  - BLOOD UREA INCREASED [None]
  - HYPERGLYCAEMIA [None]
  - DEHYDRATION [None]
